FAERS Safety Report 7552289-8 (Version None)
Quarter: 2011Q2

REPORT INFORMATION
  Report Type: 
  Country: None (occurrence: None)
  Receive Date: 20110616
  Receipt Date: 20050121
  Transmission Date: 20111010
  Serious: Yes (Death)
  Sender: FDA-Public Use
  Company Number: PHHO2004JP17753

PATIENT
  Sex: Female

DRUGS (7)
  1. ASPIRIN [Concomitant]
     Indication: ANGINA PECTORIS
     Dates: start: 20030707
  2. SIGMART [Concomitant]
     Indication: ANGINA PECTORIS
     Dates: start: 20031015
  3. TICLOPIDINE HCL [Concomitant]
     Indication: ANGINA PECTORIS
     Dates: start: 20031222
  4. DIOVAN [Suspect]
     Indication: HYPERTENSION
     Dosage: 80 MG/DAILY
     Route: 048
     Dates: start: 20031117
  5. DOXAZOSIN MESYLATE [Concomitant]
     Indication: HYPERTENSION
     Dates: start: 20031201
  6. NITRODERM [Concomitant]
     Indication: ANGINA PECTORIS
     Dates: start: 20020603
  7. AMLODIPINE [Concomitant]
     Indication: HYPERTENSION
     Dates: start: 19960610

REACTIONS (1)
  - SUBARACHNOID HAEMORRHAGE [None]
